FAERS Safety Report 5683034-9 (Version None)
Quarter: 2008Q1

REPORT INFORMATION
  Report Type: 
  Country: None (occurrence: None)
  Receive Date: 20080327
  Receipt Date: 20080319
  Transmission Date: 20080703
  Serious: Yes (Hospitalization)
  Sender: FDA-Public Use
  Company Number: PHHY2008BE03434

PATIENT
  Age: 64 Year
  Sex: Female
  Weight: 80 kg

DRUGS (1)
  1. GLEEVEC [Suspect]
     Indication: MASTOCYTOSIS
     Dosage: 100MG 3X/WEEK
     Route: 048
     Dates: start: 20050513

REACTIONS (1)
  - SYNCOPE VASOVAGAL [None]
